FAERS Safety Report 7248864-0 (Version None)
Quarter: 2011Q1

REPORT INFORMATION
  Report Type: 
  Country: None (occurrence: None)
  Receive Date: 20110128
  Receipt Date: 20100527
  Transmission Date: 20110831
  Serious: Yes (Hospitalization, Other)
  Sender: FDA-Public Use
  Company Number: US-BAYER-201014354NA

PATIENT
  Sex: Female
  Weight: 68 kg

DRUGS (19)
  1. ANTIBIOTICS [Concomitant]
     Dosage: UNK
     Dates: start: 20090401
  2. LOESTRIN 1.5/30 [Concomitant]
     Indication: CONTRACEPTION
     Dosage: UNK
     Dates: start: 20090401
  3. MOTRIN [Concomitant]
  4. YASMIN [Suspect]
     Indication: ORAL CONTRACEPTION
     Route: 048
     Dates: start: 20031101, end: 20090501
  5. PROTONIX [Concomitant]
     Indication: GASTROOESOPHAGEAL REFLUX DISEASE
     Dosage: UNK UNK, QD
     Dates: start: 20080101
  6. VERAPAMIL [Concomitant]
  7. MAXALT [Concomitant]
     Indication: MIGRAINE
     Dosage: UNK
     Dates: start: 20080101
  8. RITALIN [Concomitant]
     Indication: ATTENTION DEFICIT/HYPERACTIVITY DISORDER
     Dosage: UNK UNK, QD
     Dates: start: 20000101
  9. ALLEGRA [Concomitant]
     Indication: MULTIPLE ALLERGIES
     Dosage: UNK UNK, QD
     Dates: start: 20000101
  10. METOCLOPRAMIDE HYDROCHLORIDE [Concomitant]
     Indication: IMPAIRED GASTRIC EMPTYING
     Dosage: UNK
     Dates: start: 20090101, end: 20100101
  11. DOXYCYCLINE [Concomitant]
     Dosage: 20 MG, UNK
     Dates: start: 20080101
  12. INDERAL [Concomitant]
     Indication: MIGRAINE
     Dosage: UNK
     Dates: start: 20100101
  13. REGLAN [Concomitant]
  14. UNCODEABLE ^UNCLASSIFIABLE^ [Concomitant]
     Dosage: 20 MG, UNK
     Dates: start: 20070101
  15. METHYLPHENIDATE [Concomitant]
     Dosage: 20 MG, UNK
     Dates: start: 20080101
  16. YASMIN [Suspect]
     Indication: PREMENSTRUAL SYNDROME
  17. ALBUTEROL [Concomitant]
     Dosage: UNK
     Dates: start: 19900101
  18. CARAFATE [Concomitant]
     Dosage: DAILY DOSE 2 G
  19. CEPHALEXIN [Concomitant]
     Dosage: DAILY DOSE 1 G
     Dates: start: 20080101

REACTIONS (11)
  - MELAENA [None]
  - CHOLELITHIASIS [None]
  - GASTRITIS [None]
  - IMPAIRED GASTRIC EMPTYING [None]
  - ABDOMINAL TENDERNESS [None]
  - GASTROINTESTINAL DISORDER [None]
  - ABDOMINAL PAIN [None]
  - FAECES DISCOLOURED [None]
  - CHOLECYSTITIS CHRONIC [None]
  - EMOTIONAL DISORDER [None]
  - ABDOMINAL PAIN UPPER [None]
